FAERS Safety Report 17074746 (Version 1)
Quarter: 2019Q4

REPORT INFORMATION
  Report Type: Report from Study
  Country: US (occurrence: US)
  Receive Date: 20191126
  Receipt Date: 20191126
  Transmission Date: 20200122
  Serious: Yes (Other)
  Sender: FDA-Public Use
  Company Number: US-ROCHE-2475363

PATIENT
  Sex: Female

DRUGS (1)
  1. ACTEMRA [Suspect]
     Active Substance: TOCILIZUMAB
     Indication: RHEUMATOID ARTHRITIS
     Route: 058

REACTIONS (6)
  - Arrhythmia [Unknown]
  - Myalgia [Unknown]
  - Sensory disturbance [Unknown]
  - Rash [Unknown]
  - Deafness unilateral [Unknown]
  - Injection site pruritus [Unknown]
